FAERS Safety Report 16087118 (Version 4)
Quarter: 2019Q2

REPORT INFORMATION
  Report Type: Spontaneous
  Country: GB (occurrence: GB)
  Receive Date: 20190319
  Receipt Date: 20190614
  Transmission Date: 20190711
  Serious: Yes (Death, Hospitalization, Other)
  Sender: FDA-Public Use
  Company Number: GB-BRISTOL-MYERS SQUIBB COMPANY-BMS-2019-025928

PATIENT
  Sex: Male

DRUGS (1)
  1. OPDIVO [Suspect]
     Active Substance: NIVOLUMAB
     Indication: NON-SMALL CELL LUNG CANCER
     Dosage: 3 MILLILITRE PER KILOGRAM
     Route: 042
     Dates: start: 20180124, end: 20180305

REACTIONS (6)
  - Malignant neoplasm progression [Fatal]
  - Hyperthyroidism [Unknown]
  - Pneumonitis [Unknown]
  - Cortisol abnormal [Fatal]
  - Nephritis [Recovered/Resolved]
  - Rash [Unknown]
